FAERS Safety Report 25238821 (Version 1)
Quarter: 2025Q2

REPORT INFORMATION
  Report Type: Spontaneous
  Country: FR (occurrence: FR)
  Receive Date: 20250425
  Receipt Date: 20250425
  Transmission Date: 20250717
  Serious: Yes (Hospitalization, Other)
  Sender: ANI
  Company Number: FR-ANIPHARMA-2025-FR-000068

PATIENT
  Age: 69 Year
  Sex: Female
  Weight: 58 kg

DRUGS (2)
  1. ANASTROZOLE [Suspect]
     Active Substance: ANASTROZOLE
     Indication: Breast cancer
     Route: 048
     Dates: start: 202409
  2. HERCEPTIN [Suspect]
     Active Substance: TRASTUZUMAB
     Route: 058
     Dates: start: 20240701, end: 20241128

REACTIONS (1)
  - Optic neuropathy [Recovering/Resolving]

NARRATIVE: CASE EVENT DATE: 20241105
